FAERS Safety Report 8399285 (Version 5)
Quarter: 2014Q2

REPORT INFORMATION
  Report Type: Spontaneous
  Country: US (occurrence: US)
  Receive Date: 20120210
  Receipt Date: 20140507
  Transmission Date: 20141212
  Serious: Yes (Other)
  Sender: FDA-Public Use
  Company Number: US-BAYER-2012-012107

PATIENT
  Age: 24 Year
  Sex: Female
  Weight: 97.51 kg

DRUGS (4)
  1. YASMIN [Suspect]
     Indication: PREMENSTRUAL SYNDROME
     Dosage: UNK
     Dates: start: 20080301, end: 20080330
  2. YASMIN [Suspect]
     Indication: ACNE
  3. IBUPROFEN [Concomitant]
  4. MACROBID [Concomitant]
     Indication: URINARY TRACT INFECTION
     Dosage: 100 BID
     Dates: start: 20080401

REACTIONS (7)
  - Cholecystectomy [None]
  - Cholecystitis chronic [None]
  - Pain [None]
  - General physical health deterioration [None]
  - Anxiety [None]
  - Emotional distress [None]
  - Anhedonia [None]
